FAERS Safety Report 24611893 (Version 1)
Quarter: 2024Q4

REPORT INFORMATION
  Report Type: Spontaneous
  Country: DE (occurrence: DE)
  Receive Date: 20241113
  Receipt Date: 20241113
  Transmission Date: 20250115
  Serious: Yes (Hospitalization)
  Sender: BRISTOL-MYERS SQUIBB COMPANY
  Company Number: DE-BRISTOL-MYERS SQUIBB COMPANY-2024-176441

PATIENT
  Age: 57 Year
  Sex: Male

DRUGS (1)
  1. ELIQUIS [Suspect]
     Active Substance: APIXABAN
     Indication: Venous thrombosis limb
     Dosage: 2X 5MG
     Dates: start: 202407

REACTIONS (2)
  - Limb discomfort [Unknown]
  - Fibrin D dimer increased [Unknown]
